FAERS Safety Report 7376072-1 (Version None)
Quarter: 2011Q1

REPORT INFORMATION
  Report Type: 
  Country: None (occurrence: None)
  Receive Date: 20110325
  Receipt Date: 20110321
  Transmission Date: 20110831
  Serious: Yes (Hospitalization)
  Sender: FDA-Public Use
  Company Number: DE-BRISTOL-MYERS SQUIBB COMPANY-15223894

PATIENT
  Age: 65 Year
  Sex: Male

DRUGS (3)
  1. CETUXIMAB [Suspect]
     Indication: GASTROOESOPHAGEAL CANCER
     Dosage: STRENGTH 5MG/ML; MOST RECENT INFUSION ON 19JUL2010.ONGOING NO OF INF:5
     Route: 042
     Dates: start: 20100618
  2. XELODA [Suspect]
     Indication: GASTROOESOPHAGEAL CANCER
     Dosage: ON DAY 1-15. MOST RECENT INFUSION ON 26JUL2010.ONGOING
     Route: 048
     Dates: start: 20100618
  3. CISPLATIN [Suspect]
     Indication: GASTROOESOPHAGEAL CANCER
     Dosage: ON DAY 1 OF CYCLE. MOST RECENT INFUSION ON 12JUL2010.ONGOING
     Route: 042
     Dates: start: 20100619

REACTIONS (1)
  - DEEP VEIN THROMBOSIS [None]
